FAERS Safety Report 4548005-4 (Version None)
Quarter: 2004Q4

REPORT INFORMATION
  Report Type: 
  Country: None (occurrence: None)
  Receive Date: 20041220
  Receipt Date: 20040701
  Transmission Date: 20050328
  Serious: Yes (Life-Threatening, Hospitalization, Other)
  Sender: FDA-Public Use
  Company Number: USA040771594

PATIENT
  Age: 12 Year
  Sex: Male
  Weight: 70 kg

DRUGS (4)
  1. INSULIN [Suspect]
  2. HUMULIN R [Suspect]
  3. HUMULIN N [Suspect]
     Dosage: 48 U DAY
  4. ALPHA LIPOIC ACID [Concomitant]

REACTIONS (4)
  - BLOOD GLUCOSE INCREASED [None]
  - DIABETIC COMA [None]
  - INJECTION SITE FIBROSIS [None]
  - LOSS OF CONSCIOUSNESS [None]
